FAERS Safety Report 11234598 (Version 1)
Quarter: 2015Q2

REPORT INFORMATION
  Report Type: Spontaneous
  Country: US (occurrence: None)
  Receive Date: 20150630
  Receipt Date: 20150630
  Transmission Date: 20150821
  Serious: No
  Sender: FDA-Public Use
  Company Number: 1210513-2015-00138

PATIENT
  Sex: Male

DRUGS (1)
  1. EARWAX REMOVAL KIT [Suspect]
     Active Substance: CARBAMIDE PEROXIDE
     Indication: CERUMEN REMOVAL
     Dosage: 1X OTIC
     Dates: start: 20150603

REACTIONS (2)
  - Device physical property issue [None]
  - Administration site laceration [None]

NARRATIVE: CASE EVENT DATE: 20150603
